FAERS Safety Report 5239396-X (Version None)
Quarter: 2007Q1

REPORT INFORMATION
  Report Type: 
  Country: None (occurrence: None)
  Receive Date: 20070216
  Receipt Date: 20070206
  Transmission Date: 20070707
  Serious: Yes (Other)
  Sender: FDA-Public Use
  Company Number: 2007UW02474

PATIENT
  Age: 16 Year
  Sex: Female
  Weight: 46.7 kg

DRUGS (8)
  1. SEROQUEL [Suspect]
     Indication: BIPOLAR DISORDER
     Route: 048
  2. SEROQUEL [Suspect]
     Route: 048
     Dates: start: 20070205
  3. CYMBALTA [Concomitant]
     Indication: ANXIETY
  4. CYMBALTA [Concomitant]
     Dates: start: 20070205
  5. KLONOPIN [Concomitant]
     Indication: ANXIETY
  6. KLONOPIN [Concomitant]
     Dates: start: 20070205
  7. GEODON [Concomitant]
     Dates: start: 20070131
  8. NEURONTIN [Concomitant]
     Dates: start: 20070131

REACTIONS (4)
  - CRYING [None]
  - ILL-DEFINED DISORDER [None]
  - SUICIDAL IDEATION [None]
  - THINKING ABNORMAL [None]
